FAERS Safety Report 5759273-5 (Version None)
Quarter: 2008Q2

REPORT INFORMATION
  Report Type: 
  Country: None (occurrence: None)
  Receive Date: 20080604
  Receipt Date: 20080529
  Transmission Date: 20081010
  Serious: Yes (Other)
  Sender: FDA-Public Use
  Company Number: JP-MERCK-0805USA01218

PATIENT
  Age: 60 Year
  Sex: Male
  Weight: 88 kg

DRUGS (5)
  1. HYZAAR [Suspect]
     Indication: HYPERTENSION
     Route: 048
     Dates: start: 20080327, end: 20080330
  2. OLMETEC [Concomitant]
     Indication: HYPERTENSION
     Route: 048
     Dates: end: 20080326
  3. LIPITOR [Concomitant]
     Route: 048
     Dates: start: 20000101
  4. NORVASC [Concomitant]
     Route: 048
     Dates: start: 20020101
  5. ALLOPURINOL [Concomitant]
     Route: 048

REACTIONS (1)
  - HAEMORRHAGIC DIATHESIS [None]
